FAERS Safety Report 4494435-9 (Version None)
Quarter: 2004Q4

REPORT INFORMATION
  Report Type: 
  Country: None (occurrence: None)
  Receive Date: 20041102
  Receipt Date: 20041018
  Transmission Date: 20050328
  Serious: Yes (Hospitalization)
  Sender: FDA-Public Use
  Company Number: FR_040904737

PATIENT
  Age: 48 Year
  Sex: Male
  Weight: 72 kg

DRUGS (8)
  1. GEMZAR [Suspect]
     Indication: NON-SMALL CELL LUNG CANCER
     Dosage: 2200 MG/1 OTHER
     Dates: start: 20040330, end: 20040801
  2. CISPLATIN [Concomitant]
  3. ONDANSETRON HYDROCHLORIDE [Concomitant]
  4. NEURONTIN [Concomitant]
  5. INEXIUM (ESOMEPRAZOLE) [Concomitant]
  6. ASPEGIC 1000 [Concomitant]
  7. PLITICAN (ALIZAPRIDE HYDROCHLORIDE) [Concomitant]
  8. SOLU-MEDROL [Concomitant]

REACTIONS (2)
  - ERYTHEMA [None]
  - EYELID OEDEMA [None]
